FAERS Safety Report 4649086-X (Version None)
Quarter: 2005Q2

REPORT INFORMATION
  Report Type: 
  Country: None (occurrence: None)
  Receive Date: 20050429
  Receipt Date: 20050419
  Transmission Date: 20051028
  Serious: Yes (Hospitalization)
  Sender: FDA-Public Use
  Company Number: US-GLAXOSMITHKLINE-A0554844A

PATIENT
  Age: 44 Year
  Sex: Female

DRUGS (18)
  1. PAXIL [Suspect]
     Indication: DEPRESSION
     Dosage: 15MG PER DAY
     Route: 048
     Dates: start: 19960601
  2. WELLBUTRIN SR [Suspect]
     Indication: DEPRESSION
     Dosage: 150MG TWICE PER DAY
     Route: 048
     Dates: start: 19960601
  3. AVONEX [Concomitant]
  4. AMBIEN [Concomitant]
  5. XANAX [Concomitant]
  6. L-THYROXINE [Concomitant]
  7. METHADONE HCL [Concomitant]
  8. BACLOFEN [Concomitant]
  9. NEURONTIN [Concomitant]
  10. LISINOPRIL [Concomitant]
  11. MACRODANTIN [Concomitant]
  12. GEMFIBROZIL [Concomitant]
  13. DETROL LA [Concomitant]
  14. PROTONIX [Concomitant]
  15. ZETIA [Concomitant]
  16. PROPOXYPHENE HCL [Concomitant]
  17. PROVIGIL [Concomitant]
  18. KEPPRA [Concomitant]

REACTIONS (4)
  - BRONCHITIS [None]
  - CONVERSION DISORDER [None]
  - MULTIPLE SCLEROSIS [None]
  - TREMOR [None]
